FAERS Safety Report 7209216-2 (Version None)
Quarter: 2011Q1

REPORT INFORMATION
  Report Type: 
  Country: None (occurrence: None)
  Receive Date: 20110104
  Receipt Date: 20101216
  Transmission Date: 20110831
  Serious: Yes (Death)
  Sender: FDA-Public Use
  Company Number: A0805732A

PATIENT
  Age: 56 Year
  Sex: Male

DRUGS (1)
  1. AVANDIA [Suspect]
     Route: 048
     Dates: end: 20040317

REACTIONS (3)
  - CORONARY ARTERY DISEASE [None]
  - CARDIAC ARREST [None]
  - MYOCARDIAL INFARCTION [None]
